FAERS Safety Report 10426564 (Version 2)
Quarter: 2014Q3

REPORT INFORMATION
  Report Type: Spontaneous
  Country: GB (occurrence: GB)
  Receive Date: 20140903
  Receipt Date: 20140922
  Transmission Date: 20150326
  Serious: Yes (Death)
  Sender: FDA-Public Use
  Company Number: GB-JNJFOC-20140820947

PATIENT
  Age: 18 Year
  Sex: Female
  Weight: 69 kg

DRUGS (1)
  1. NORETHINDRONE AND ETHINYL ESTRADIOL [Suspect]
     Active Substance: ETHINYL ESTRADIOL\NORETHINDRONE
     Indication: CONTRACEPTION
     Route: 048
     Dates: start: 20140529

REACTIONS (4)
  - Cerebral infarction [Fatal]
  - Deep vein thrombosis [Not Recovered/Not Resolved]
  - Pulmonary embolism [Fatal]
  - Cerebral artery thrombosis [Unknown]

NARRATIVE: CASE EVENT DATE: 20140731
